FAERS Safety Report 5169915-3 (Version None)
Quarter: 2006Q4

REPORT INFORMATION
  Report Type: 
  Country: None (occurrence: None)
  Receive Date: 20061212
  Receipt Date: 20061127
  Transmission Date: 20070319
  Serious: Yes (Hospitalization)
  Sender: FDA-Public Use
  Company Number: US-ELI_LILLY_AND_COMPANY-US200611004893

PATIENT
  Age: 47 Year
  Sex: Male

DRUGS (7)
  1. PROZAC [Suspect]
     Indication: MAJOR DEPRESSION
     Dosage: UNK, UNK
     Route: 048
     Dates: start: 19890101
  2. PROZAC [Suspect]
     Dosage: 40 MG, 2/D
     Route: 048
     Dates: start: 19890101
  3. KLONOPIN [Concomitant]
     Dosage: 3 MG, DAILY (1/D)
  4. COREG [Concomitant]
     Indication: CARDIAC DISORDER
     Dosage: 3.25 MG, DAILY (1/D)
  5. LISINOPRIL [Concomitant]
     Indication: DIURETIC THERAPY
     Dosage: 5 MG, DAILY (1/D)
  6. SINEQUAN [Concomitant]
  7. SIMVASTATIN [Concomitant]

REACTIONS (6)
  - BREAST ENLARGEMENT [None]
  - CARDIAC OPERATION [None]
  - FLUID RETENTION [None]
  - RASH [None]
  - SKIN DISCOLOURATION [None]
  - URINE FLOW DECREASED [None]
